FAERS Safety Report 7005603-6 (Version None)
Quarter: 2010Q3

REPORT INFORMATION
  Report Type: 
  Country: None (occurrence: None)
  Receive Date: 20100921
  Receipt Date: 20100910
  Transmission Date: 20110219
  Serious: Yes (Hospitalization)
  Sender: FDA-Public Use
  Company Number: A0881893A

PATIENT
  Age: 50 Year
  Sex: Male

DRUGS (1)
  1. AVANDIA [Suspect]
     Dosage: 8MG PER DAY
     Dates: start: 20040401, end: 20070801

REACTIONS (2)
  - CARDIAC FAILURE CONGESTIVE [None]
  - SLEEP APNOEA SYNDROME [None]
